FAERS Safety Report 9711094 (Version 2)
Quarter: 2013Q4

REPORT INFORMATION
  Report Type: Spontaneous
  Country: US (occurrence: US)
  Receive Date: 20131126
  Receipt Date: 20131126
  Transmission Date: 20140711
  Serious: No
  Sender: FDA-Public Use
  Company Number: US-BRISTOL-MYERS SQUIBB COMPANY-19133040

PATIENT
  Age: 61 Year
  Sex: Female
  Weight: 77.1 kg

DRUGS (5)
  1. BYETTA PEN DISPOSABLE [Suspect]
     Indication: TYPE 2 DIABETES MELLITUS
     Dosage: INITIAL DOSE-10MCG,BID THEN 10MCG/D
     Route: 058
     Dates: start: 201301
  2. METFORMIN HCL [Suspect]
     Dosage: 850- ONE TABLET WITH DINNER
     Route: 048
  3. SPIRONOLACTONE [Concomitant]
     Dosage: ONE TABLET IN THE MORNING
     Route: 048
  4. FUROSEMIDE [Concomitant]
     Dosage: ONE TABLET IN THE MORNING
     Route: 048
  5. SINGULAIR [Concomitant]
     Dosage: ONE TABLET AT BEDTIME
     Route: 055

REACTIONS (2)
  - Blood glucose increased [Not Recovered/Not Resolved]
  - Decreased appetite [Recovering/Resolving]
